FAERS Safety Report 8523927-8 (Version None)
Quarter: 2012Q3

REPORT INFORMATION
  Report Type: 
  Country: None (occurrence: None)
  Receive Date: 20120720
  Receipt Date: 20120710
  Transmission Date: 20120928
  Serious: Yes (Death, Life-Threatening, Other)
  Sender: FDA-Public Use
  Company Number: FR-BRISTOL-MYERS SQUIBB COMPANY-12589693

PATIENT
  Age: 81 Year
  Sex: Female
  Weight: 61 kg

DRUGS (4)
  1. GENTAMICIN [Concomitant]
     Dates: start: 20040206
  2. IMIPENEM AND CILASTATIN SODIUM [Concomitant]
     Dosage: WITHHELD FROM 02- TO 06-FEB-2004
     Dates: end: 20040209
  3. CEFEPIME HYDROCHLORIDE [Suspect]
     Route: 042
     Dates: start: 20040209, end: 20040219
  4. AUGMENTIN '500' [Suspect]
     Route: 042
     Dates: start: 20040209, end: 20040219

REACTIONS (6)
  - TOXIC ENCEPHALOPATHY [None]
  - DEATH [None]
  - MEDICATION ERROR [None]
  - RENAL FAILURE [None]
  - OVERDOSE [None]
  - STATUS EPILEPTICUS [None]
